FAERS Safety Report 25998965 (Version 1)
Quarter: 2025Q4

REPORT INFORMATION
  Report Type: Spontaneous
  Country: CN (occurrence: CN)
  Receive Date: 20251105
  Receipt Date: 20251105
  Transmission Date: 20260119
  Serious: Yes (Other)
  Sender: ALEXION PHARMACEUTICALS
  Company Number: CN-ASTRAZENECA-202510CHN029808CN

PATIENT
  Age: 81 Year
  Sex: Female
  Weight: 58 kg

DRUGS (1)
  1. CRESTOR [Suspect]
     Active Substance: ROSUVASTATIN CALCIUM
     Indication: Hypolipidaemia
     Dosage: 10 MILLIGRAM, QD
     Dates: start: 20251009, end: 20251009

REACTIONS (1)
  - Cardiac flutter [Recovering/Resolving]

NARRATIVE: CASE EVENT DATE: 20251009
